FAERS Safety Report 19170815 (Version 3)
Quarter: 2021Q2

REPORT INFORMATION
  Report Type: Spontaneous
  Country: ES (occurrence: ES)
  Receive Date: 20210422
  Receipt Date: 20210604
  Transmission Date: 20210717
  Serious: Yes (Other)
  Sender: FDA-Public Use
  Company Number: ES-GILEAD-2021-0526439

PATIENT
  Age: 53 Year
  Sex: Male

DRUGS (2)
  1. VARENICLINE TARTRATE [Interacting]
     Active Substance: VARENICLINE TARTRATE
     Indication: TOBACCO USER
     Dosage: (0.5 MG + 1 MG) EVERY 24 HOUR
     Route: 048
     Dates: start: 20210127, end: 20210222
  2. RANOLAZINE. [Suspect]
     Active Substance: RANOLAZINE
     Indication: ANGINA PECTORIS
     Route: 048
     Dates: start: 20191030, end: 20210222

REACTIONS (3)
  - Labelled drug-drug interaction medication error [Recovered/Resolved]
  - Cardiac failure [Recovered/Resolved]
  - Condition aggravated [Recovered/Resolved]

NARRATIVE: CASE EVENT DATE: 20210127
